FAERS Safety Report 10786216 (Version 1)
Quarter: 2015Q1

REPORT INFORMATION
  Report Type: Spontaneous
  Country: US (occurrence: None)
  Receive Date: 20150210
  Receipt Date: 20150210
  Transmission Date: 20150721
  Serious: Yes (Hospitalization)
  Sender: FDA-Public Use
  Company Number: None

PATIENT
  Age: 78 Year
  Sex: Male
  Weight: 84.9 kg

DRUGS (2)
  1. LEUPROLIDE ACETATE. [Suspect]
     Active Substance: LEUPROLIDE ACETATE
     Dates: end: 20141211
  2. CASODEX [Suspect]
     Active Substance: BICALUTAMIDE
     Dates: end: 20150109

REACTIONS (7)
  - Diarrhoea [None]
  - Dizziness [None]
  - Hypokalaemia [None]
  - Abdominal pain lower [None]
  - Colitis [None]
  - Pyrexia [None]
  - Diverticulum [None]

NARRATIVE: CASE EVENT DATE: 20150112
